FAERS Safety Report 8317856-2 (Version None)
Quarter: 2012Q2

REPORT INFORMATION
  Report Type: 
  Country: None (occurrence: None)
  Receive Date: 20120427
  Receipt Date: 20120424
  Transmission Date: 20120825
  Serious: No
  Sender: FDA-Public Use
  Company Number: US-JNJFOC-20120403942

PATIENT
  Sex: Female
  Weight: 61.69 kg

DRUGS (4)
  1. NORCO [Concomitant]
     Indication: PAIN
     Route: 048
     Dates: start: 19870101
  2. DURAGESIC-100 [Suspect]
     Route: 062
     Dates: start: 20050101
  3. PREMARIN [Concomitant]
     Indication: MENOPAUSE
     Route: 048
     Dates: start: 19960101
  4. DURAGESIC-100 [Suspect]
     Indication: PAIN
     Dosage: 150MCG/PATCH/100MCG + 50MCG/1 IN  48 HOURS/TD
     Route: 062
     Dates: start: 20000101, end: 20050101

REACTIONS (2)
  - DRUG INEFFECTIVE [None]
  - PRODUCT QUALITY ISSUE [None]
